FAERS Safety Report 7658961-3 (Version None)
Quarter: 2011Q3

REPORT INFORMATION
  Report Type: 
  Country: None (occurrence: None)
  Receive Date: 20110805
  Receipt Date: 20110722
  Transmission Date: 20111222
  Serious: Yes (Hospitalization)
  Sender: FDA-Public Use
  Company Number: DE-SANOFI-AVENTIS-2011SA048167

PATIENT
  Age: 73 Year
  Sex: Male
  Weight: 185 kg

DRUGS (7)
  1. CAPTOPRIL [Concomitant]
  2. ASPIRIN [Concomitant]
  3. INSULIN [Concomitant]
  4. MAGNESIUM [Concomitant]
  5. DRONEDARONE HCL [Suspect]
     Indication: ATRIAL FIBRILLATION
     Route: 048
     Dates: start: 20110406
  6. TORSEMIDE [Concomitant]
  7. DIGOXIN [Concomitant]

REACTIONS (1)
  - CARDIAC FAILURE [None]
